FAERS Safety Report 5661618-1 (Version None)
Quarter: 2008Q1

REPORT INFORMATION
  Report Type: 
  Country: None (occurrence: None)
  Receive Date: 20080312
  Receipt Date: 20080304
  Transmission Date: 20080703
  Serious: Yes (Other)
  Sender: FDA-Public Use
  Company Number: PHEH2008US02495

PATIENT
  Age: 50 Year
  Sex: Male

DRUGS (1)
  1. FOCALIN XR [Suspect]
     Dosage: 20 MG, QD
     Route: 048
     Dates: start: 20070701, end: 20080201

REACTIONS (3)
  - ACCESSORY CARDIAC PATHWAY [None]
  - PALPITATIONS [None]
  - SUPRAVENTRICULAR TACHYCARDIA [None]
